FAERS Safety Report 6038139-X (Version None)
Quarter: 2009Q1

REPORT INFORMATION
  Report Type: 
  Country: None (occurrence: None)
  Receive Date: 20090113
  Receipt Date: 20090113
  Transmission Date: 20090719
  Serious: Yes (Other)
  Sender: FDA-Public Use
  Company Number: None

PATIENT
  Age: 76 Year

DRUGS (9)
  1. SERTRALINE [Suspect]
     Indication: ANXIETY
     Dosage: DAILY ONCE
     Dates: start: 20050101, end: 20050501
  2. SERTRALINE [Suspect]
     Indication: DEPRESSION
     Dosage: DAILY ONCE
     Dates: start: 20050101, end: 20050501
  3. SERTRALINE [Suspect]
     Indication: ANXIETY
     Dosage: DAILY ONCE
     Dates: start: 20080901, end: 20081001
  4. SERTRALINE [Suspect]
     Indication: DEPRESSION
     Dosage: DAILY ONCE
     Dates: start: 20080901, end: 20081001
  5. SERTRALINE [Suspect]
     Indication: ANXIETY
     Dosage: DAILY ONCE
     Dates: start: 20080101
  6. SERTRALINE [Suspect]
     Indication: DEPRESSION
     Dosage: DAILY ONCE
     Dates: start: 20080101
  7. SINEMET [Concomitant]
  8. MIRAPEX [Concomitant]
  9. NEXIUM [Concomitant]

REACTIONS (5)
  - BALANCE DISORDER [None]
  - DIZZINESS [None]
  - INSOMNIA [None]
  - PRODUCT QUALITY ISSUE [None]
  - PRURITUS [None]
